FAERS Safety Report 7049313-8 (Version None)
Quarter: 2010Q4

REPORT INFORMATION
  Report Type: 
  Country: None (occurrence: None)
  Receive Date: 20101018
  Receipt Date: 20090921
  Transmission Date: 20110411
  Serious: No
  Sender: FDA-Public Use
  Company Number: A0805994A

PATIENT
  Age: 80 Year
  Sex: Male

DRUGS (14)
  1. CEFTIN [Suspect]
     Indication: HIP SURGERY
     Dosage: 250MG UNKNOWN
     Route: 048
     Dates: start: 20090717, end: 20090810
  2. UNKNOWN MEDICATION [Concomitant]
  3. CARDIZEM [Concomitant]
  4. ENSURE [Concomitant]
  5. COLACE [Concomitant]
  6. DIGOXIN [Concomitant]
  7. M.V.I. [Concomitant]
  8. ASCORBIC ACID [Concomitant]
  9. UNKNOWN MEDICATION [Concomitant]
  10. LOPRESSOR [Concomitant]
  11. PRILOSEC [Concomitant]
  12. BENEFIBER [Concomitant]
  13. COUMADIN [Concomitant]
  14. CPAP [Concomitant]

REACTIONS (1)
  - DIARRHOEA [None]
